FAERS Safety Report 18425276 (Version 1)
Quarter: 2020Q4

REPORT INFORMATION
  Report Type: Spontaneous
  Country: US (occurrence: US)
  Receive Date: 20201023
  Receipt Date: 20201023
  Transmission Date: 20210114
  Serious: No
  Sender: FDA-Public Use
  Company Number: None

PATIENT
  Age: 65 Year
  Weight: 59.85 kg

DRUGS (11)
  1. MAGNESIUM OXIDE. [Concomitant]
     Active Substance: MAGNESIUM OXIDE
  2. HYDROCORTISONE. [Concomitant]
     Active Substance: HYDROCORTISONE
  3. TRIAMCINOLONE [Concomitant]
     Active Substance: TRIAMCINOLONE
  4. HYDROCHLOROTHIAZIDE. [Concomitant]
     Active Substance: HYDROCHLOROTHIAZIDE
  5. XGEVA [Concomitant]
     Active Substance: DENOSUMAB
  6. VITAMIN A [Concomitant]
     Active Substance: VITAMIN A
  7. VITAMIN B12 [Concomitant]
     Active Substance: CYANOCOBALAMIN
  8. XANAX [Concomitant]
     Active Substance: ALPRAZOLAM
  9. METOPROLOL SUCCINATE ER [Concomitant]
     Active Substance: METOPROLOL SUCCINATE
  10. PIQRAY [Suspect]
     Active Substance: ALPELISIB
     Indication: BREAST CANCER
     Route: 048
     Dates: start: 20200522, end: 20201023
  11. VITAMIN E [Concomitant]
     Active Substance: .ALPHA.-TOCOPHEROL

REACTIONS (4)
  - Back pain [None]
  - Bone pain [None]
  - Paraesthesia [None]
  - Headache [None]

NARRATIVE: CASE EVENT DATE: 20201023
